FAERS Safety Report 8598511-0 (Version None)
Quarter: 2012Q3

REPORT INFORMATION
  Report Type: 
  Country: None (occurrence: None)
  Receive Date: 20120816
  Receipt Date: 20120813
  Transmission Date: 20120928
  Serious: Yes (Hospitalization)
  Sender: FDA-Public Use
  Company Number: DE-ROCHE-1084502

PATIENT
  Age: 74 Year
  Sex: Male
  Weight: 74.9 kg

DRUGS (21)
  1. ONDANSETRON [Concomitant]
     Route: 042
     Dates: start: 20120404, end: 20120606
  2. ALLOPURINOL [Concomitant]
     Indication: GOUT
     Route: 048
  3. ATROVENT [Concomitant]
     Indication: DYSPNOEA
     Dosage: 8 DROPS
     Dates: start: 20120518
  4. LAXANS-RATIOPHARM [Concomitant]
     Indication: CONSTIPATION
     Route: 054
     Dates: start: 20120424
  5. DEXAMETHASONE [Concomitant]
     Route: 042
     Dates: start: 20120404, end: 20120606
  6. DEXAMETHASONE [Concomitant]
     Route: 048
     Dates: start: 20120411, end: 20120625
  7. METOCLOPRAMIDE [Concomitant]
     Indication: NAUSEA
     Dosage: 30 DROPS
     Route: 048
     Dates: start: 20120411, end: 20120625
  8. AVASTIN [Suspect]
     Indication: NON-SMALL CELL LUNG CANCER
     Dosage: MOST RECENT DOSE RECEIVED 06/JUN/2012, LAST DOSE OF DRUG RECEIVED 1125 MG
     Route: 042
     Dates: start: 20120425
  9. CARBOPLATIN [Suspect]
     Indication: NON-SMALL CELL LUNG CANCER
     Dosage: MOST RECENT DOSE RECEIVED 06/JUN/2012, LAST DOSE OF DRUG RECEIVED 460 MG
     Route: 042
     Dates: start: 20120404
  10. GLYCILAX [Concomitant]
     Indication: CONSTIPATION
     Route: 054
     Dates: start: 20120424
  11. ONDANSETRON [Concomitant]
     Route: 048
     Dates: start: 20120411, end: 20120625
  12. CALCICARE [Concomitant]
     Indication: METASTASES TO BONE
     Route: 048
     Dates: start: 20120424
  13. PACLITAXEL [Suspect]
     Indication: NON-SMALL CELL LUNG CANCER
     Dosage: MOST RECENT DOSE RECEIVED 06/JUN/2012, LAST DOSE OF DRUG RECEIVED 269 MG
     Route: 042
     Dates: start: 20120404
  14. PAMIDRONATE DISODIUM [Concomitant]
     Indication: METASTASES TO BONE
     Route: 042
     Dates: start: 20120627, end: 20120627
  15. PLACEBO [Suspect]
     Indication: NON-SMALL CELL LUNG CANCER
     Route: 042
     Dates: start: 20120405
  16. RANITIDINE HCL [Concomitant]
     Route: 042
     Dates: start: 20120404, end: 20120606
  17. DICLOFENAC [Concomitant]
     Indication: BONE PAIN
     Route: 048
     Dates: start: 20120427, end: 20120625
  18. ALBUTEROL SULFATE [Concomitant]
     Indication: DYSPNOEA
     Dosage: 5 DROPS
     Dates: start: 20120518
  19. CLEMASTINE FUMARATE [Concomitant]
     Route: 042
     Dates: start: 20120404, end: 20120606
  20. ENALAPRIL MALEATE [Concomitant]
     Indication: HYPERTENSION
     Route: 048
  21. PANTOPRAZOLE [Concomitant]
     Route: 048
     Dates: start: 20120427, end: 20120625

REACTIONS (2)
  - PNEUMONITIS [None]
  - GENERAL PHYSICAL HEALTH DETERIORATION [None]
